FAERS Safety Report 8268288 (Version 4)
Quarter: 2014Q3

REPORT INFORMATION
  Report Type: Spontaneous
  Country: US (occurrence: US)
  Receive Date: 20111130
  Receipt Date: 20140708
  Transmission Date: 20150326
  Serious: Yes (Life-Threatening, Hospitalization, Other)
  Sender: FDA-Public Use
  Company Number: US-BAYER-2011-114528

PATIENT
  Age: 30 Year
  Sex: Female
  Weight: 65.76 kg

DRUGS (2)
  1. YAZ [Suspect]
     Active Substance: DROSPIRENONE\ETHINYL ESTRADIOL
     Indication: CONTRACEPTION
     Dosage: UNK
     Route: 048
     Dates: start: 200909, end: 200912
  2. NAPROXEN. [Concomitant]
     Active Substance: NAPROXEN
     Dosage: 500 MG, UNK
     Route: 048
     Dates: start: 20091111

REACTIONS (8)
  - Pain [None]
  - Emotional distress [None]
  - Thrombosis [None]
  - Injury [None]
  - Pulmonary embolism [None]
  - General physical health deterioration [None]
  - Deep vein thrombosis [None]
  - Deep vein thrombosis [Recovered/Resolved]

NARRATIVE: CASE EVENT DATE: 200912
